FAERS Safety Report 8759582 (Version 1)
Quarter: 2012Q4

REPORT INFORMATION
  Report Type: 
  Country: US (occurrence: US)
  Receive Date: 20120829
  Receipt Date: 20120829
  Transmission Date: 20130627
  Serious: Yes (Other)
  Sender: FDA-Public Use
  Company Number: US-FRI-1000038138

PATIENT
  Sex: Female

DRUGS (5)
  1. LEXAPRO [Suspect]
  2. OXYCONTIN [Suspect]
     Dosage: 80 mg
  3. ALPRAZOLAM [Suspect]
  4. ROXICODONE [Suspect]
  5. UNSPECIFIED INGREDIENT [Suspect]

REACTIONS (4)
  - Cardiac disorder [Unknown]
  - Pain [Unknown]
  - Headache [Unknown]
  - Somnolence [Unknown]
